FAERS Safety Report 13090027 (Version 1)
Quarter: 2017Q1

REPORT INFORMATION
  Report Type: Spontaneous
  Country: FR (occurrence: FR)
  Receive Date: 20170105
  Receipt Date: 20170105
  Transmission Date: 20170428
  Serious: Yes (Other)
  Sender: FDA-Public Use
  Company Number: FR-VIIV HEALTHCARE LIMITED-FR2016GSK193478

PATIENT
  Age: 43 Year
  Sex: Male

DRUGS (2)
  1. TIVICAY [Suspect]
     Active Substance: DOLUTEGRAVIR SODIUM
     Indication: PRODUCT USED FOR UNKNOWN INDICATION
     Dosage: 50 MG, UNK
     Dates: start: 201511
  2. TIVICAY [Suspect]
     Active Substance: DOLUTEGRAVIR SODIUM
     Dosage: 50 MG, QD
     Dates: start: 20160105

REACTIONS (5)
  - Polyarthritis [Not Recovered/Not Resolved]
  - Joint crepitation [Not Recovered/Not Resolved]
  - Arthralgia [Not Recovered/Not Resolved]
  - Lipoatrophy [Not Recovered/Not Resolved]
  - Muscle atrophy [Not Recovered/Not Resolved]

NARRATIVE: CASE EVENT DATE: 201603
